FAERS Safety Report 9556541 (Version 1)
Quarter: 2013Q3

REPORT INFORMATION
  Report Type: Spontaneous
  Country: US (occurrence: US)
  Receive Date: 20130926
  Receipt Date: 20130926
  Transmission Date: 20140515
  Serious: No
  Sender: FDA-Public Use
  Company Number: US-PFIZER INC-2013271274

PATIENT
  Age: 91 Year
  Sex: Female
  Weight: 88.89 kg

DRUGS (1)
  1. ZYVOX [Suspect]
     Indication: INFECTION
     Dosage: 600 MG, 2X/DAY
     Route: 042
     Dates: start: 20130916, end: 20130918

REACTIONS (2)
  - Injection site extravasation [Unknown]
  - Pain in extremity [Unknown]
